FAERS Safety Report 18649138 (Version 1)
Quarter: 2020Q4

REPORT INFORMATION
  Report Type: Spontaneous
  Country: US (occurrence: US)
  Receive Date: 20201222
  Receipt Date: 20201222
  Transmission Date: 20210114
  Serious: Yes (Death)
  Sender: FDA-Public Use
  Company Number: None

PATIENT
  Age: 74 Year
  Sex: Female

DRUGS (10)
  1. PROTONIX [Concomitant]
     Active Substance: PANTOPRAZOLE SODIUM
  2. XOPENEX HFA [Suspect]
     Active Substance: LEVALBUTEROL TARTRATE
  3. HUMALOG [Concomitant]
     Active Substance: INSULIN LISPRO
  4. REVATIO [Concomitant]
     Active Substance: SILDENAFIL CITRATE
  5. REPATHA [Suspect]
     Active Substance: EVOLOCUMAB
     Indication: PULMONARY HYPERTENSION
     Route: 058
     Dates: start: 20200313
  6. ELIQUIS [Concomitant]
     Active Substance: APIXABAN
  7. EFFEXOR [Concomitant]
     Active Substance: VENLAFAXINE HYDROCHLORIDE
  8. NORVASC [Concomitant]
     Active Substance: AMLODIPINE BESYLATE
  9. ZETIA [Concomitant]
     Active Substance: EZETIMIBE
  10. ULORIC [Concomitant]
     Active Substance: FEBUXOSTAT

REACTIONS (1)
  - Death [None]

NARRATIVE: CASE EVENT DATE: 20201221
